FAERS Safety Report 23917257 (Version 3)
Quarter: 2024Q2

REPORT INFORMATION
  Report Type: Spontaneous
  Country: US (occurrence: US)
  Receive Date: 20240529
  Receipt Date: 20240621
  Transmission Date: 20240716
  Serious: No
  Sender: FDA-Public Use
  Company Number: US-Blueprint Medicines Corporation-3687

PATIENT
  Sex: Female

DRUGS (3)
  1. AYVAKIT [Suspect]
     Active Substance: AVAPRITINIB
     Indication: Systemic mastocytosis
     Route: 065
     Dates: start: 20240505
  2. AYVAKIT [Suspect]
     Active Substance: AVAPRITINIB
     Indication: Indolent systemic mastocytosis
     Route: 065
  3. AYVAKIT [Suspect]
     Active Substance: AVAPRITINIB
     Route: 065
     Dates: start: 20240430

REACTIONS (15)
  - Arthralgia [Unknown]
  - Myalgia [Unknown]
  - Lacrimation increased [Unknown]
  - Feeling abnormal [Unknown]
  - Alopecia [Unknown]
  - Headache [Unknown]
  - Urine flow decreased [Unknown]
  - Constipation [Unknown]
  - Appetite disorder [Unknown]
  - Weight increased [Unknown]
  - Fatigue [Unknown]
  - Rash pruritic [Unknown]
  - Rash [Unknown]
  - Back pain [Unknown]
  - Cutaneous symptom [Unknown]
